FAERS Safety Report 9495431 (Version 3)
Quarter: 2013Q3

REPORT INFORMATION
  Report Type: Spontaneous
  Country: US (occurrence: US)
  Receive Date: 20130903
  Receipt Date: 20130909
  Transmission Date: 20140515
  Serious: Yes (Hospitalization)
  Sender: FDA-Public Use
  Company Number: US-PFIZER INC-2013121387

PATIENT
  Age: 45 Year
  Sex: Female
  Weight: 112 kg

DRUGS (7)
  1. LYRICA [Suspect]
     Dosage: 150, 2 QD
  2. METHOTREXATE [Concomitant]
     Dosage: UNK
  3. LEUCOVORIN CALCIUM [Concomitant]
     Dosage: UNK
  4. PREDNISONE [Concomitant]
     Dosage: UNK
  5. ALPRAZOLAM [Concomitant]
     Dosage: UNK
  6. DEXLANSOPRAZOLE [Concomitant]
     Dosage: UNK
  7. HCTZ [Concomitant]
     Dosage: UNK

REACTIONS (4)
  - Back disorder [Unknown]
  - Malaise [Unknown]
  - Gait disturbance [Unknown]
  - Pain [Unknown]
